FAERS Safety Report 6736387-4 (Version None)
Quarter: 2010Q2

REPORT INFORMATION
  Report Type: 
  Country: None (occurrence: None)
  Receive Date: 20100521
  Receipt Date: 20100507
  Transmission Date: 20101027
  Serious: Yes (Hospitalization)
  Sender: FDA-Public Use
  Company Number: JP-MERCK-1005USA01318

PATIENT
  Age: 70 Year
  Sex: Male
  Weight: 62 kg

DRUGS (5)
  1. PEPCID [Suspect]
     Route: 065
  2. HOCHU-EKKI-TO [Concomitant]
     Indication: MALAISE
     Route: 048
     Dates: start: 20050801
  3. FUROSEMIDE [Concomitant]
     Route: 065
  4. IMIDAPRIL HYDROCHLORIDE [Concomitant]
     Route: 065
  5. URSODIOL [Concomitant]
     Route: 065
     Dates: start: 20050801

REACTIONS (2)
  - HEPATIC NEOPLASM MALIGNANT [None]
  - LARGE INTESTINE CARCINOMA [None]
